FAERS Safety Report 8822176 (Version 3)
Quarter: 2013Q1

REPORT INFORMATION
  Report Type: Spontaneous
  Country: US (occurrence: US)
  Receive Date: 20121003
  Receipt Date: 20130109
  Transmission Date: 20140127
  Serious: No
  Sender: FDA-Public Use
  Company Number: US-009507513-1209USA003848

PATIENT
  Sex: Male

DRUGS (12)
  1. VICTRELIS [Suspect]
     Indication: HEPATITIS C
     Dosage: 800 MG, Q8H
     Route: 048
     Dates: start: 20120816
  2. PEGASYS [Suspect]
     Dosage: 180 MICROGRAM/0.5 ML, UNK
  3. RIBASPHERE [Suspect]
     Dosage: 200 MG, UNK
  4. COREG [Concomitant]
  5. ACCUPRIL [Concomitant]
  6. TAMSULOSIN HYDROCHLORIDE [Concomitant]
  7. HYDROCHLORTHIAZID [Concomitant]
  8. VITAMIN B COMPLEX [Concomitant]
  9. OXYCONTIN [Concomitant]
  10. PRILOSEC OTC [Concomitant]
  11. VITAMIN D (UNSPECIFIED) [Concomitant]
  12. PROCRIT [Concomitant]

REACTIONS (4)
  - Injection site rash [Recovering/Resolving]
  - Haemoglobin decreased [Unknown]
  - Nausea [Unknown]
  - Fatigue [Unknown]
